FAERS Safety Report 9719130 (Version 1)
Quarter: 2013Q4

REPORT INFORMATION
  Report Type: Spontaneous
  Country: HU (occurrence: HU)
  Receive Date: 20131127
  Receipt Date: 20131127
  Transmission Date: 20140711
  Serious: Yes (Hospitalization, Other)
  Sender: FDA-Public Use
  Company Number: PHHY2013HU132443

PATIENT
  Age: 79 Year
  Sex: Female

DRUGS (2)
  1. CARVEDILOL [Suspect]
     Indication: BLOOD PRESSURE INCREASED
     Dosage: 12.5 MG, BID
  2. CARVEDILOL [Suspect]
     Indication: HEART RATE INCREASED

REACTIONS (13)
  - Stress cardiomyopathy [Recovered/Resolved]
  - Chest discomfort [Recovered/Resolved]
  - Hyperhidrosis [Recovered/Resolved]
  - Dyspnoea [Recovered/Resolved]
  - Sinus tachycardia [Recovered/Resolved]
  - Ventricular dyskinesia [Recovered/Resolved]
  - Electrocardiogram QT prolonged [Recovered/Resolved]
  - Troponin T increased [Recovered/Resolved]
  - Blood creatine phosphokinase increased [Recovered/Resolved]
  - Subvalvular aortic stenosis [Recovered/Resolved]
  - Swelling face [Unknown]
  - Drug withdrawal syndrome [Unknown]
  - Rash [Unknown]
